FAERS Safety Report 7148079-0 (Version None)
Quarter: 2010Q4

REPORT INFORMATION
  Report Type: 
  Country: None (occurrence: None)
  Receive Date: 20101209
  Receipt Date: 20100723
  Transmission Date: 20110411
  Serious: No
  Sender: FDA-Public Use
  Company Number: US-ABBOTT-10P-163-0660616-00

PATIENT
  Sex: Female
  Weight: 56.75 kg

DRUGS (4)
  1. VICODIN ES [Suspect]
     Indication: HEADACHE
     Dosage: 7.5/750 MG TABLET: 1 TAB EVERY 4 HRS PRN
     Dates: start: 20060101
  2. VICODIN ES [Suspect]
     Indication: PAIN
  3. KLONOPIN [Concomitant]
     Indication: ANXIETY
  4. AMBIEN [Concomitant]
     Indication: INSOMNIA

REACTIONS (1)
  - DRUG INEFFECTIVE [None]
